FAERS Safety Report 21986102 (Version 18)
Quarter: 2024Q2

REPORT INFORMATION
  Report Type: Spontaneous
  Country: JP (occurrence: JP)
  Receive Date: 20230213
  Receipt Date: 20240408
  Transmission Date: 20240716
  Serious: Yes (Life-Threatening, Hospitalization, Other)
  Sender: FDA-Public Use
  Company Number: JP-MSD-M2023-05065

PATIENT
  Age: 54 Year
  Sex: Female

DRUGS (5)
  1. KEYTRUDA [Suspect]
     Active Substance: PEMBROLIZUMAB
     Indication: Cervix carcinoma stage IV
     Dosage: 200 MILLIGRAM, Q3W
     Route: 041
     Dates: start: 20221118, end: 20230126
  2. CARBOPLATIN [Suspect]
     Active Substance: CARBOPLATIN
     Indication: Cervix carcinoma stage IV
     Dosage: UNK
     Route: 041
     Dates: start: 20221118
  3. PACLITAXEL [Suspect]
     Active Substance: PACLITAXEL
     Indication: Cervix carcinoma stage IV
     Dosage: UNK
     Route: 041
     Dates: start: 20221118
  4. BEVACIZUMAB [Suspect]
     Active Substance: BEVACIZUMAB
     Indication: Cervix carcinoma stage IV
     Dosage: UNK
     Route: 041
     Dates: start: 20221118
  5. MORPHINE SULFATE [Concomitant]
     Active Substance: MORPHINE SULFATE
     Indication: Musculoskeletal pain
     Dosage: UNK
     Route: 065

REACTIONS (9)
  - Immune-mediated cholangitis [Unknown]
  - Myelosuppression [Recovering/Resolving]
  - Immune-mediated cholangitis [Not Recovered/Not Resolved]
  - Streptococcal bacteraemia [Recovering/Resolving]
  - Hepatic function abnormal [Recovering/Resolving]
  - Dyslipidaemia [Unknown]
  - Bone density decreased [Unknown]
  - Insomnia [Unknown]
  - Hyperglycaemia [Recovering/Resolving]

NARRATIVE: CASE EVENT DATE: 20230101
